FAERS Safety Report 24551448 (Version 2)
Quarter: 2024Q4

REPORT INFORMATION
  Report Type: Spontaneous
  Country: US (occurrence: US)
  Receive Date: 20241026
  Receipt Date: 20241126
  Transmission Date: 20250114
  Serious: No
  Sender: ABBVIE
  Company Number: US-ABBVIE-5973905

PATIENT
  Sex: Female

DRUGS (1)
  1. CARAFATE [Suspect]
     Active Substance: SUCRALFATE
     Indication: Reflux laryngitis
     Route: 065
     Dates: start: 2014

REACTIONS (5)
  - Off label use [Unknown]
  - Cough [Not Recovered/Not Resolved]
  - Gastritis erosive [Unknown]
  - Bronchitis [Not Recovered/Not Resolved]
  - Gastritis [Unknown]

NARRATIVE: CASE EVENT DATE: 20240101
